FAERS Safety Report 6657665-3 (Version None)
Quarter: 2010Q1

REPORT INFORMATION
  Report Type: 
  Country: None (occurrence: None)
  Receive Date: 20100319
  Receipt Date: 20090324
  Transmission Date: 20100710
  Serious: Yes (Hospitalization, Other)
  Sender: FDA-Public Use
  Company Number: 2009SP006427

PATIENT
  Sex: Female

DRUGS (4)
  1. PEG-INTRON [Suspect]
     Indication: HEPATITIS C
     Dosage: QW;SC
     Route: 058
     Dates: start: 20090101, end: 20090303
  2. RIBAVIRIN [Suspect]
     Indication: HEPATITIS C
     Dosage: 1000 MG;QD;PO
     Route: 048
     Dates: start: 20090101, end: 20090303
  3. CALCIUM (CON.) [Concomitant]
  4. MYLANTA (CON.) [Concomitant]

REACTIONS (2)
  - APLASTIC ANAEMIA [None]
  - THROMBOCYTOPENIA [None]
